FAERS Safety Report 13530585 (Version 1)
Quarter: 2017Q2

REPORT INFORMATION
  Report Type: Spontaneous
  Country: US (occurrence: US)
  Receive Date: 20170509
  Receipt Date: 20170509
  Transmission Date: 20170830
  Serious: Yes (Life-Threatening, Other)
  Sender: FDA-Public Use
  Company Number: None

PATIENT
  Age: 57 Year
  Sex: Male
  Weight: 130.5 kg

DRUGS (5)
  1. HYDRALAZINE [Suspect]
     Active Substance: HYDRALAZINE HYDROCHLORIDE
     Indication: HYPERTENSION
     Dosage: ?          QUANTITY:60 TABLET(S);?
     Route: 048
  2. BUMETANIDE. [Concomitant]
     Active Substance: BUMETANIDE
  3. PREDNISONE. [Concomitant]
     Active Substance: PREDNISONE
  4. CARVEDILOL. [Concomitant]
     Active Substance: CARVEDILOL
  5. HYDRALAZINE [Concomitant]
     Active Substance: HYDRALAZINE HYDROCHLORIDE

REACTIONS (3)
  - Hypertension [None]
  - Product quality issue [None]
  - Drug ineffective [None]

NARRATIVE: CASE EVENT DATE: 20170509
